FAERS Safety Report 8596291 (Version 4)
Quarter: 2014Q2

REPORT INFORMATION
  Report Type: Spontaneous
  Country: US (occurrence: US)
  Receive Date: 20120605
  Receipt Date: 20140523
  Transmission Date: 20141212
  Serious: Yes (Hospitalization, Disabling, Other)
  Sender: FDA-Public Use
  Company Number: US-ASTRAZENECA-2012SE34472

PATIENT
  Age: 56 Year
  Sex: Male
  Weight: 56.7 kg

DRUGS (44)
  1. NEXIUM [Suspect]
     Indication: LIVER DISORDER
     Route: 048
  2. NEXIUM [Suspect]
     Indication: GASTROOESOPHAGEAL REFLUX DISEASE
     Route: 048
  3. NEXIUM [Suspect]
     Indication: LIVER DISORDER
     Dosage: 1 TIME
     Route: 048
  4. NEXIUM [Suspect]
     Indication: GASTROOESOPHAGEAL REFLUX DISEASE
     Dosage: 1 TIME
     Route: 048
  5. NEXIUM [Suspect]
     Indication: LIVER DISORDER
     Route: 048
     Dates: start: 2003
  6. NEXIUM [Suspect]
     Indication: GASTROOESOPHAGEAL REFLUX DISEASE
     Route: 048
     Dates: start: 2003
  7. NEXIUM [Suspect]
     Indication: LIVER DISORDER
     Route: 048
  8. NEXIUM [Suspect]
     Indication: GASTROOESOPHAGEAL REFLUX DISEASE
     Route: 048
  9. NEXIUM [Suspect]
     Indication: LIVER DISORDER
     Route: 048
     Dates: start: 20030106
  10. NEXIUM [Suspect]
     Indication: GASTROOESOPHAGEAL REFLUX DISEASE
     Route: 048
     Dates: start: 20030106
  11. NEXIUM [Suspect]
     Indication: LIVER DISORDER
     Route: 048
     Dates: start: 20030213
  12. NEXIUM [Suspect]
     Indication: GASTROOESOPHAGEAL REFLUX DISEASE
     Route: 048
     Dates: start: 20030213
  13. NEXIUM [Suspect]
     Indication: LIVER DISORDER
     Route: 048
     Dates: end: 2010
  14. NEXIUM [Suspect]
     Indication: GASTROOESOPHAGEAL REFLUX DISEASE
     Route: 048
     Dates: end: 2010
  15. NEXIUM [Suspect]
     Indication: LIVER DISORDER
     Route: 048
     Dates: start: 2003, end: 2005
  16. NEXIUM [Suspect]
     Indication: GASTROOESOPHAGEAL REFLUX DISEASE
     Route: 048
     Dates: start: 2003, end: 2005
  17. OMEPRAZOLE [Concomitant]
  18. RANITIDINE [Concomitant]
     Dates: start: 2012
  19. PAIN MEDICATION [Concomitant]
  20. TUMS [Concomitant]
     Dosage: A FEW TIMES IN LIFE
  21. ALKA-SELTZER [Concomitant]
     Indication: ABDOMINAL DISCOMFORT
     Dosage: A FEW TIME
  22. METOPROLOL TARTRATE [Concomitant]
  23. HYDROCHLOROTHIAZIDE [Concomitant]
  24. HYDROCHLOROTHIAZIDE [Concomitant]
  25. FUROSEMIDE [Concomitant]
  26. METHADONE [Concomitant]
     Dosage: 10 MG, 6-8 A DAY
     Dates: start: 2000
  27. MORPHINE SULFATE [Concomitant]
     Dosage: UP TO 4 TIMES A DAY
  28. CALCIUM [Concomitant]
  29. VITAMIN D [Concomitant]
  30. FOSAMAX [Concomitant]
     Indication: OSTEOPOROSIS
  31. ATENOLOL [Concomitant]
     Dates: start: 2000
  32. IBUPROFEN [Concomitant]
     Dates: start: 2000
  33. IMITREX [Concomitant]
     Dates: start: 20030110
  34. ENBREL [Concomitant]
     Dates: start: 20031004
  35. CELEBREX [Concomitant]
     Dates: start: 20030123
  36. LOTRISONE [Concomitant]
     Dates: start: 20040312
  37. ENALAPRIL [Concomitant]
  38. PROMETHAZINE [Concomitant]
     Dates: start: 20030727
  39. PREDNISONE [Concomitant]
     Dates: start: 20030806
  40. PREDNISONE [Concomitant]
     Dates: start: 20030829
  41. SORIATANE [Concomitant]
     Dates: start: 20030903
  42. LOPERAMIDE [Concomitant]
     Dates: start: 20030313
  43. AMBIEN [Concomitant]
     Dates: start: 20030514
  44. HYDROXYZINE HCL [Concomitant]

REACTIONS (8)
  - Spinal fracture [Unknown]
  - Hip fracture [Unknown]
  - Intervertebral disc protrusion [Unknown]
  - Osteoporosis [Unknown]
  - Intervertebral disc compression [Unknown]
  - Blood calcium decreased [Unknown]
  - Pain [Unknown]
  - Vitamin D decreased [Unknown]
